FAERS Safety Report 6448576-7 (Version None)
Quarter: 2009Q4

REPORT INFORMATION
  Report Type: 
  Country: None (occurrence: None)
  Receive Date: 20091120
  Receipt Date: 20091109
  Transmission Date: 20100525
  Serious: Yes (Other)
  Sender: FDA-Public Use
  Company Number: NL-BAYER-200939637GPV

PATIENT
  Age: 74 Year
  Sex: Male

DRUGS (1)
  1. MOXIFLOXACIN HCL [Suspect]
     Indication: DRUG USE FOR UNKNOWN INDICATION
     Route: 048

REACTIONS (6)
  - EYE PAIN [None]
  - IRIS TRANSILLUMINATION DEFECT [None]
  - MYDRIASIS [None]
  - OCULAR HYPERAEMIA [None]
  - PHOTOPHOBIA [None]
  - UVEITIS [None]
